FAERS Safety Report 6510514-6 (Version None)
Quarter: 2009Q4

REPORT INFORMATION
  Report Type: 
  Country: None (occurrence: None)
  Receive Date: 20091222
  Receipt Date: 20091204
  Transmission Date: 20100525
  Serious: Yes (Death, Hospitalization)
  Sender: FDA-Public Use
  Company Number: RU-MERCK-0912RUS00001

PATIENT
  Age: 49 Year
  Sex: Female

DRUGS (1)
  1. CANCIDAS [Suspect]
     Indication: RESPIRATORY MONILIASIS
     Route: 065

REACTIONS (1)
  - MULTI-ORGAN DISORDER [None]
